FAERS Safety Report 8208142-X (Version None)
Quarter: 2012Q1

REPORT INFORMATION
  Report Type: 
  Country: None (occurrence: None)
  Receive Date: 20120314
  Receipt Date: 20120306
  Transmission Date: 20120608
  Serious: Yes (Other)
  Sender: FDA-Public Use
  Company Number: PHHY2012FR020582

PATIENT
  Sex: Female

DRUGS (4)
  1. ZOMETA [Suspect]
     Dosage: 4 MG, EVERY 3 WEEKS
     Dates: end: 20110101
  2. CORTICOSTEROID NOS [Concomitant]
  3. ZOMETA [Suspect]
     Indication: BREAST CANCER METASTATIC
     Dosage: 4 MG, EVERY 6 WEEKS
     Dates: start: 20090601
  4. AVASTIN [Concomitant]

REACTIONS (6)
  - OSTEONECROSIS OF JAW [None]
  - EXPOSED BONE IN JAW [None]
  - EAR PAIN [None]
  - SOMNOLENCE [None]
  - PAIN IN JAW [None]
  - PRIMARY SEQUESTRUM [None]
